FAERS Safety Report 10232682 (Version 2)
Quarter: 2014Q2

REPORT INFORMATION
  Report Type: Report from Study
  Country: US (occurrence: US)
  Receive Date: 20140612
  Receipt Date: 20140620
  Transmission Date: 20141212
  Serious: Yes (Death, Hospitalization, Other)
  Sender: FDA-Public Use
  Company Number: PHEH2014US011786

PATIENT
  Age: 84 Year
  Sex: Female

DRUGS (2)
  1. TEGRETOL [Suspect]
     Dosage: 400 MG, UNK
     Route: 048
  2. TEGRETOL [Suspect]
     Dosage: 200 MG, UNK
     Route: 048

REACTIONS (12)
  - Death [Fatal]
  - Sepsis [Unknown]
  - Cholangitis acute [Unknown]
  - Deep vein thrombosis [Unknown]
  - Decubitus ulcer [Unknown]
  - Hypoalbuminaemia [Unknown]
  - Cholangiocarcinoma [Unknown]
  - Respiratory distress [Unknown]
  - Jaundice cholestatic [Unknown]
  - Pain [Unknown]
  - Anaemia [Unknown]
  - Renal failure acute [Unknown]
